FAERS Safety Report 7791360-2 (Version None)
Quarter: 2011Q4

REPORT INFORMATION
  Report Type: 
  Country: None (occurrence: None)
  Receive Date: 20111003
  Receipt Date: 20080306
  Transmission Date: 20120403
  Serious: No
  Sender: FDA-Public Use
  Company Number: 2008BI006882

PATIENT
  Sex: Female

DRUGS (1)
  1. TYSABRI [Suspect]
     Indication: MULTIPLE SCLEROSIS
     Route: 042
     Dates: start: 20071213

REACTIONS (4)
  - URINARY TRACT INFECTION [None]
  - ARTHRITIS [None]
  - ASTHENIA [None]
  - DIZZINESS [None]
